FAERS Safety Report 5150373-X (Version None)
Quarter: 2006Q4

REPORT INFORMATION
  Report Type: 
  Country: None (occurrence: None)
  Receive Date: 20061108
  Receipt Date: 20061025
  Transmission Date: 20070319
  Serious: Yes (Other)
  Sender: FDA-Public Use
  Company Number: 2006133154

PATIENT
  Age: 81 Year
  Sex: Male

DRUGS (4)
  1. SULPERAZON (SULBACTAM, CEFOPERAZONE) [Suspect]
     Dosage: 1 GRAM, INTRAVENOUS
     Route: 042
  2. DIGOXIN [Concomitant]
  3. PROPOFOL [Concomitant]
  4. VECURONIUM BROMIDE [Concomitant]

REACTIONS (5)
  - ATRIAL FIBRILLATION [None]
  - CARDIAC ARREST [None]
  - FLUSHING [None]
  - HYPOTENSION [None]
  - VENTRICULAR FIBRILLATION [None]
